FAERS Safety Report 21791818 (Version 1)
Quarter: 2022Q4

REPORT INFORMATION
  Report Type: Spontaneous
  Country: US (occurrence: US)
  Receive Date: 20221229
  Receipt Date: 20221229
  Transmission Date: 20230113
  Serious: No
  Sender: FDA-Public Use
  Company Number: US-VIIV HEALTHCARE LIMITED-US2022AMR187798

PATIENT
  Age: 63 Year
  Sex: Male

DRUGS (4)
  1. RILPIVIRINE [Suspect]
     Active Substance: RILPIVIRINE
     Indication: HIV infection
     Dosage: UNK UNK,0MG/2ML Z: 400 MG/600 MG IM ONCE MONTHLY
     Route: 030
     Dates: start: 20220608, end: 20220608
  2. RILPIVIRINE [Suspect]
     Active Substance: RILPIVIRINE
     Dosage: UNK UNK, Z: 600MG/900MG ONCE AS LOADING DOSE, 0MG/2ML
     Route: 065
  3. CABOTEGRAVIR [Suspect]
     Active Substance: CABOTEGRAVIR
     Indication: HIV infection
     Dosage: UNK UNK,0MG/2ML Z: 400 MG/600 MG IM ONCE MONTHLY
     Route: 030
     Dates: start: 20220608, end: 20220608
  4. CABOTEGRAVIR [Suspect]
     Active Substance: CABOTEGRAVIR
     Dosage: UNK UNK, Z: 600MG/900MG ONCE AS LOADING DOSE, 0MG/2ML
     Route: 065

REACTIONS (1)
  - Product dose omission issue [Not Recovered/Not Resolved]
